FAERS Safety Report 5487705-9 (Version None)
Quarter: 2007Q4

REPORT INFORMATION
  Report Type: 
  Country: None (occurrence: None)
  Receive Date: 20071017
  Receipt Date: 20071010
  Transmission Date: 20080405
  Serious: Yes (Hospitalization)
  Sender: FDA-Public Use
  Company Number: PHBS2007JP16997

PATIENT
  Age: 39 Year
  Sex: Female

DRUGS (1)
  1. VOLTAREN [Suspect]
     Route: 054

REACTIONS (2)
  - APPENDICITIS [None]
  - LARGE INTESTINAL ULCER HAEMORRHAGE [None]
